FAERS Safety Report 8164249-7 (Version None)
Quarter: 2012Q1

REPORT INFORMATION
  Report Type: 
  Country: None (occurrence: None)
  Receive Date: 20120224
  Receipt Date: 20111025
  Transmission Date: 20120608
  Serious: No
  Sender: FDA-Public Use
  Company Number: US-ASTRAZENECA-2011SE64451

PATIENT
  Age: 65 Year
  Sex: Male

DRUGS (2)
  1. OTHER MEDICATION [Concomitant]
  2. VIMOVO [Suspect]
     Route: 048

REACTIONS (1)
  - ADVERSE DRUG REACTION [None]
